FAERS Safety Report 7813136-X (Version None)
Quarter: 2011Q4

REPORT INFORMATION
  Report Type: 
  Country: None (occurrence: None)
  Receive Date: 20111013
  Receipt Date: 20110915
  Transmission Date: 20120403
  Serious: Yes (Hospitalization)
  Sender: FDA-Public Use
  Company Number: CA-ROCHE-GNE324802

PATIENT
  Sex: Male

DRUGS (1)
  1. XOLAIR [Suspect]
     Indication: ASTHMA
     Dosage: LAST DOSE PRIOR TO SAE: 22/AUG/2011.
     Route: 058
     Dates: start: 20110404, end: 20110822

REACTIONS (2)
  - BRONCHOSPASM [None]
  - DRUG INEFFECTIVE [None]
